FAERS Safety Report 5593109-0 (Version None)
Quarter: 2008Q1

REPORT INFORMATION
  Report Type: 
  Country: None (occurrence: None)
  Receive Date: 20080116
  Receipt Date: 20080110
  Transmission Date: 20080703
  Serious: Yes (Life-Threatening, Hospitalization, Other)
  Sender: FDA-Public Use
  Company Number: FR-JNJFOC-20080102964

PATIENT
  Age: 26 Year
  Sex: Female

DRUGS (1)
  1. INFLIXIMAB* [Suspect]
     Indication: CROHN'S DISEASE
     Route: 042

REACTIONS (1)
  - HODGKIN'S DISEASE [None]
